FAERS Safety Report 5745925-X (Version None)
Quarter: 2008Q2

REPORT INFORMATION
  Report Type: 
  Country: None (occurrence: None)
  Receive Date: 20080520
  Receipt Date: 20080513
  Transmission Date: 20081010
  Serious: Yes (Death, Hospitalization)
  Sender: FDA-Public Use
  Company Number: 163-21880-08031550

PATIENT
  Age: 87 Year
  Sex: Male

DRUGS (3)
  1. REVLIMID [Suspect]
     Indication: MULTIPLE MYELOMA
     Dosage: 20 MG, 2 DAILY FOR 21 DAYS, ORAL; 10 MG, 1 IN 1 D, ORAL
     Route: 048
     Dates: start: 20061211, end: 20070501
  2. REVLIMID [Suspect]
     Indication: MULTIPLE MYELOMA
     Dosage: 20 MG, 2 DAILY FOR 21 DAYS, ORAL; 10 MG, 1 IN 1 D, ORAL
     Route: 048
     Dates: start: 20070904, end: 20080201
  3. DEXAMETHASONE TAB [Concomitant]

REACTIONS (5)
  - ANOREXIA [None]
  - CARDIAC FAILURE CONGESTIVE [None]
  - DIZZINESS [None]
  - RASH PRURITIC [None]
  - WEIGHT DECREASED [None]
